FAERS Safety Report 4530467-X (Version None)
Quarter: 2004Q4

REPORT INFORMATION
  Report Type: 
  Country: None (occurrence: None)
  Receive Date: 20041215
  Receipt Date: 20041209
  Transmission Date: 20050328
  Serious: Yes (Other)
  Sender: FDA-Public Use
  Company Number: GXKR2004BR00495

PATIENT
  Age: 50 Year
  Sex: Female
  Weight: 75 kg

DRUGS (1)
  1. CLORIDRATO DE FLUOXETINA (NGX) (FLUOXETINE) [Suspect]
     Dosage: 20 MG, BID, ORAL
     Route: 048
     Dates: start: 20031201

REACTIONS (3)
  - BLOOD CHOLESTEROL INCREASED [None]
  - HYPERTHYROIDISM [None]
  - WEIGHT INCREASED [None]
